FAERS Safety Report 6217292-9 (Version None)
Quarter: 2009Q2

REPORT INFORMATION
  Report Type: 
  Country: None (occurrence: None)
  Receive Date: 20090608
  Receipt Date: 20090327
  Transmission Date: 20091009
  Serious: Yes (Hospitalization)
  Sender: FDA-Public Use
  Company Number: DE-PFIZER INC-2009165365

PATIENT
  Age: 73 Year

DRUGS (9)
  1. INHALED HUMAN INSULIN [Suspect]
     Indication: TYPE 2 DIABETES MELLITUS
     Dosage: 2 MG, 1X/DAY
     Route: 055
     Dates: start: 20070531, end: 20080801
  2. *INSULIN GLARGINE [Suspect]
     Indication: TYPE 2 DIABETES MELLITUS
     Dosage: 12 IU, 1X/DAY
  3. *INSULIN GLULISINE [Suspect]
     Indication: TYPE 2 DIABETES MELLITUS
     Dosage: PRN/3XDAILY
  4. BISOPROLOL FUMARATE [Concomitant]
     Route: 048
  5. SIMVASTATIN [Concomitant]
     Route: 048
  6. MOXONIDINE [Concomitant]
     Route: 048
  7. FUROSEMID [Concomitant]
     Route: 048
  8. ASPIRIN [Concomitant]
     Dosage: 100 MG, UNK
     Route: 048
     Dates: end: 20081118
  9. COAPROVEL [Concomitant]
     Route: 048

REACTIONS (2)
  - DUODENITIS [None]
  - GASTRIC HAEMORRHAGE [None]
